FAERS Safety Report 16460558 (Version 1)
Quarter: 2019Q2

REPORT INFORMATION
  Report Type: Spontaneous
  Country: US (occurrence: US)
  Receive Date: 20190620
  Receipt Date: 20190620
  Transmission Date: 20190711
  Serious: No
  Sender: FDA-Public Use
  Company Number: US-FERRINGPH-2019FE01732

PATIENT
  Age: 65 Year
  Sex: Female
  Weight: 95.24 kg

DRUGS (1)
  1. CLENPIQ [Suspect]
     Active Substance: ANHYDROUS CITRIC ACID\MAGNESIUM OXIDE\SODIUM PICOSULFATE
     Indication: BOWEL PREPARATION
     Dosage: 2 DOSES
     Route: 048
     Dates: start: 20190326, end: 20190326

REACTIONS (3)
  - Flushing [Not Recovered/Not Resolved]
  - Erythema [Not Recovered/Not Resolved]
  - Lid sulcus deepened [Not Recovered/Not Resolved]

NARRATIVE: CASE EVENT DATE: 20190327
